FAERS Safety Report 4532313-7 (Version None)
Quarter: 2004Q4

REPORT INFORMATION
  Report Type: 
  Country: None (occurrence: None)
  Receive Date: 20041217
  Receipt Date: 20041201
  Transmission Date: 20050328
  Serious: Yes (Hospitalization, Disabling, Other)
  Sender: FDA-Public Use
  Company Number: 2004239035US

PATIENT
  Age: 69 Year
  Sex: Female
  Weight: 108.8633 kg

DRUGS (3)
  1. CELEBREX [Suspect]
     Indication: PSORIATIC ARTHROPATHY
     Dosage: 200 MG (200 MG, 1 IN 1 D)
     Dates: start: 20030801, end: 20040214
  2. LEVOTHYROXINE SODIUM [Concomitant]
  3. PRINZIDE [Concomitant]

REACTIONS (7)
  - ABASIA [None]
  - ATRIAL FIBRILLATION [None]
  - IRRITABILITY [None]
  - OEDEMA PERIPHERAL [None]
  - RASH [None]
  - SKIN DISCOLOURATION [None]
  - TREMOR [None]
